FAERS Safety Report 5623875-7 (Version None)
Quarter: 2008Q1

REPORT INFORMATION
  Report Type: 
  Country: None (occurrence: None)
  Receive Date: 20080207
  Receipt Date: 20080124
  Transmission Date: 20080703
  Serious: Yes (Hospitalization)
  Sender: FDA-Public Use
  Company Number: PAR_02096_2008

PATIENT
  Sex: Female

DRUGS (2)
  1. IBUPROFEN [Suspect]
     Indication: RHEUMATIC HEART DISEASE
     Dosage: DF ORAL
     Route: 048
  2. ASPIRIN [Suspect]
     Indication: RHEUMATIC HEART DISEASE
     Dosage: DF ORAL
     Route: 048

REACTIONS (1)
  - STEVENS-JOHNSON SYNDROME [None]
